FAERS Safety Report 5286834-2 (Version None)
Quarter: 2007Q2

REPORT INFORMATION
  Report Type: 
  Country: None (occurrence: None)
  Receive Date: 20070404
  Receipt Date: 20070329
  Transmission Date: 20071010
  Serious: Yes (Disabling)
  Sender: FDA-Public Use
  Company Number: SA-ROXANE LABORATORIES, INC-2007-BP-04383RO

PATIENT
  Age: 50 Year
  Sex: Female

DRUGS (1)
  1. THIORIDAZINE HCL [Suspect]
     Indication: PSYCHOTIC DISORDER
     Dosage: 2000 MG/DAY X 6 WEEKS
     Dates: start: 19720101, end: 19720101

REACTIONS (8)
  - BLINDNESS [None]
  - COLOUR VISION TESTS ABNORMAL [None]
  - NIGHT BLINDNESS [None]
  - RETINAL DEPIGMENTATION [None]
  - RETINAL TOXICITY [None]
  - VISION BLURRED [None]
  - VISUAL ACUITY REDUCED [None]
  - VISUAL FIELD DEFECT [None]
